FAERS Safety Report 5507861-3 (Version None)
Quarter: 2007Q4

REPORT INFORMATION
  Report Type: 
  Country: None (occurrence: None)
  Receive Date: 20071031
  Receipt Date: 20070227
  Transmission Date: 20080405
  Serious: Yes (Hospitalization)
  Sender: FDA-Public Use
  Company Number: 484336

PATIENT
  Age: 85 Year
  Sex: Male
  Weight: 99.8 kg

DRUGS (2)
  1. ALEVE [Suspect]
     Indication: DRUG USE FOR UNKNOWN INDICATION
     Dates: start: 20070214
  2. BACTRIM                                  (SULFAMETHOXAZOLE/ THRIMETHOP [Suspect]
     Indication: DRUG USE FOR UNKNOWN INDICATION
     Dates: start: 20070214

REACTIONS (1)
  - STEVENS-JOHNSON SYNDROME [None]
